FAERS Safety Report 6245641-4 (Version None)
Quarter: 2009Q2

REPORT INFORMATION
  Report Type: 
  Country: None (occurrence: None)
  Receive Date: 20090625
  Receipt Date: 20081229
  Transmission Date: 20091009
  Serious: Yes (Other)
  Sender: FDA-Public Use
  Company Number: US-ASTRAZENECA-2008UW28819

PATIENT
  Age: 62 Year
  Sex: Male
  Weight: 122.9 kg

DRUGS (12)
  1. ZOLADEX [Suspect]
     Indication: PROSTATE CANCER
     Route: 058
  2. AMLODIPINE [Concomitant]
  3. CITALOPRAM HYDROBROMIDE [Concomitant]
  4. GLIPIZIDE [Concomitant]
  5. LISINOPRIL [Concomitant]
     Route: 048
  6. METOPROLOL SUCCINATE [Concomitant]
  7. POGLITAZONE [Concomitant]
  8. SIMVASTATIN [Concomitant]
  9. HYDRION [Concomitant]
  10. LEVITRA [Concomitant]
  11. ASPIRIN [Concomitant]
  12. ESCOTALOPRAM [Concomitant]

REACTIONS (2)
  - PRURITUS [None]
  - RASH [None]
